FAERS Safety Report 12626825 (Version 3)
Quarter: 2016Q4

REPORT INFORMATION
  Report Type: Spontaneous
  Country: GB (occurrence: GB)
  Receive Date: 20160805
  Receipt Date: 20161013
  Transmission Date: 20170207
  Serious: Yes (Other)
  Sender: FDA-Public Use
  Company Number: GB-MYLANLABS-2016M1031327

PATIENT

DRUGS (8)
  1. SEROXAT [Suspect]
     Active Substance: PAROXETINE HYDROCHLORIDE
     Dosage: 20 MG, QD
     Route: 065
     Dates: start: 20000816
  2. PAROXETINE. [Suspect]
     Active Substance: PAROXETINE
     Indication: PRODUCT USED FOR UNKNOWN INDICATION
     Dosage: 20 MG, QID
     Dates: start: 20000626
  3. SEROXAT [Suspect]
     Active Substance: PAROXETINE HYDROCHLORIDE
     Indication: PRODUCT USED FOR UNKNOWN INDICATION
     Dosage: UNK
     Route: 065
     Dates: start: 19991121, end: 200306
  4. PARACETAMOL [Suspect]
     Active Substance: ACETAMINOPHEN
     Dosage: UNK
     Route: 065
  5. PAROXETINE. [Suspect]
     Active Substance: PAROXETINE
     Dosage: 50 MG, QID
     Dates: start: 20010329
  6. CO-DYDRAMOL [Suspect]
     Active Substance: ACETAMINOPHEN\DIHYDROCODEINE
     Dosage: UNK
     Route: 065
  7. DIAZEPAM. [Concomitant]
     Active Substance: DIAZEPAM
     Dosage: UNK
     Dates: start: 2000
  8. FLUOXETINE HYDROCHLORIDE. [Concomitant]
     Active Substance: FLUOXETINE HYDROCHLORIDE
     Dosage: UNK
     Route: 065
     Dates: start: 2003

REACTIONS (18)
  - Nausea [Unknown]
  - Withdrawal syndrome [Unknown]
  - Disturbance in attention [Unknown]
  - Apathy [Unknown]
  - Depression [Unknown]
  - Vomiting [Unknown]
  - Tension [Not Recovered/Not Resolved]
  - Decreased appetite [Unknown]
  - Headache [Unknown]
  - Suicidal ideation [Unknown]
  - Asthenia [Unknown]
  - Paraesthesia [Unknown]
  - Overdose [Not Recovered/Not Resolved]
  - Dizziness [Not Recovered/Not Resolved]
  - Insomnia [Unknown]
  - Depressed mood [Unknown]
  - Tearfulness [Unknown]
  - Agitation [Unknown]

NARRATIVE: CASE EVENT DATE: 200003
